FAERS Safety Report 8834545 (Version 3)
Quarter: 2013Q1

REPORT INFORMATION
  Report Type: Spontaneous
  Country: GR (occurrence: GR)
  Receive Date: 20121010
  Receipt Date: 20130204
  Transmission Date: 20140127
  Serious: Yes (Hospitalization)
  Sender: FDA-Public Use
  Company Number: GR-B.I. PHARMACEUTICALS,INC./RIDGEFIELD-2012-EU-05033GB

PATIENT
  Age: 75 Year
  Sex: Female

DRUGS (3)
  1. PRADAXA [Suspect]
     Indication: ATRIAL FIBRILLATION
     Dosage: 220 MG
     Route: 048
  2. UNSPECIFIED DRUG FOR HYPERTENSION [Concomitant]
     Indication: HYPERTENSION
  3. UNSPECIFIED DRUG FOR HYPERCHOLESTEROLEMIA [Concomitant]
     Indication: HYPERCHOLESTEROLAEMIA

REACTIONS (1)
  - Cerebrovascular accident [Unknown]
